FAERS Safety Report 21826547 (Version 1)
Quarter: 2023Q1

REPORT INFORMATION
  Report Type: Spontaneous
  Country: US (occurrence: US)
  Receive Date: 20230106
  Receipt Date: 20230106
  Transmission Date: 20230418
  Serious: Yes (Hospitalization, Other)
  Sender: FDA-Public Use
  Company Number: US-AMGEN-USASP2022226896

PATIENT
  Age: 54 Year
  Sex: Male

DRUGS (1)
  1. RITUXIMAB [Suspect]
     Active Substance: RITUXIMAB
     Indication: Immunoglobulin G4 related disease
     Route: 065

REACTIONS (7)
  - Coronary artery stenosis [Unknown]
  - Coronary artery aneurysm [Unknown]
  - Acute myocardial infarction [Unknown]
  - Pneumonia bacterial [Unknown]
  - COVID-19 [Unknown]
  - Drug effective for unapproved indication [Unknown]
  - Off label use [Unknown]
